FAERS Safety Report 12636520 (Version 1)
Quarter: 2016Q3

REPORT INFORMATION
  Report Type: Spontaneous
  Country: FR (occurrence: FR)
  Receive Date: 20160809
  Receipt Date: 20160809
  Transmission Date: 20161109
  Serious: Yes (Other)
  Sender: FDA-Public Use
  Company Number: FR-MYLANLABS-2016M1032970

PATIENT

DRUGS (13)
  1. IMIPENEM [Concomitant]
     Active Substance: IMIPENEM
     Dosage: UNK
  2. KEPPRA [Concomitant]
     Active Substance: LEVETIRACETAM
     Indication: PRODUCT USED FOR UNKNOWN INDICATION
     Dosage: UNK
  3. HYPNOVEL                           /00634101/ [Concomitant]
     Active Substance: MIDAZOLAM\MIDAZOLAM HYDROCHLORIDE
     Indication: PRODUCT USED FOR UNKNOWN INDICATION
     Dosage: UNK
     Dates: end: 20160617
  4. PIPERACILLIN,TAZOBACTAM MYLAN [Suspect]
     Active Substance: PIPERACILLIN SODIUM\TAZOBACTAM SODIUM
     Indication: DEVICE RELATED SEPSIS
     Dosage: 300 MG/KG, QD
     Route: 042
     Dates: start: 20160612, end: 20160616
  5. VANCOMYCINE SANDOZ [Suspect]
     Active Substance: VANCOMYCIN
     Indication: DEVICE RELATED SEPSIS
     Dosage: 15 MG/KG, QD
     Route: 042
     Dates: start: 20160614, end: 20160615
  6. SUFENTANIL [Concomitant]
     Active Substance: SUFENTANIL
     Indication: PRODUCT USED FOR UNKNOWN INDICATION
     Dosage: UNK
  7. HYPNOVEL                           /00634101/ [Concomitant]
     Active Substance: MIDAZOLAM\MIDAZOLAM HYDROCHLORIDE
     Dosage: UNK
     Dates: start: 2016
  8. GENTAMYCIN                         /00047101/ [Suspect]
     Active Substance: GENTAMICIN
     Indication: DEVICE RELATED SEPSIS
     Dosage: 5 MG/KG, QD
     Route: 042
     Dates: start: 20160612, end: 20160616
  9. PARACETAMOL [Suspect]
     Active Substance: ACETAMINOPHEN
     Indication: HYPERTHERMIA
     Dosage: UNK
     Route: 042
     Dates: start: 20160529
  10. GARDENAL                           /00023201/ [Suspect]
     Active Substance: PHENOBARBITAL
     Indication: STATUS EPILEPTICUS
     Dosage: 5 MG/KG, QD
     Route: 042
     Dates: start: 20160529, end: 20160606
  11. SMOFLIPID [Suspect]
     Active Substance: FISH OIL\MEDIUM-CHAIN TRIGLYCERIDES\OLIVE OIL\SOYBEAN OIL
     Indication: PARENTERAL NUTRITION
     Dosage: 150 ML, QD
     Route: 042
     Dates: start: 20160614, end: 20160617
  12. THIOPENTAL ROTEXMEDICA [Suspect]
     Active Substance: THIOPENTAL
     Indication: ENDOTRACHEAL INTUBATION
     Dosage: 72 MG/KG, QD
     Route: 042
     Dates: start: 20160606, end: 20160618
  13. IMIPENEM [Concomitant]
     Active Substance: IMIPENEM
     Indication: DEVICE RELATED SEPSIS
     Dosage: UNK

REACTIONS (3)
  - Hepatocellular injury [Recovering/Resolving]
  - Rash morbilliform [Unknown]
  - Prothrombin time shortened [Recovered/Resolved]

NARRATIVE: CASE EVENT DATE: 20160618
